FAERS Safety Report 8925046 (Version 1)
Quarter: 2012Q4

REPORT INFORMATION
  Report Type: 
  Country: GB (occurrence: GB)
  Receive Date: 20121126
  Receipt Date: 20121126
  Transmission Date: 20130627
  Serious: Yes (Hospitalization)
  Sender: FDA-Public Use
  Company Number: GB-BAYER-2012-119293

PATIENT
  Age: 72 Year
  Sex: Male

DRUGS (8)
  1. ACETYLSALICYLIC ACID({=100 MG) [Suspect]
     Indication: MYOCARDIAL INFARCTION
     Dosage: 75 mg, QD
     Route: 048
     Dates: start: 20120626
  2. CLOPIDOGREL [Suspect]
     Dosage: 75 mg, QD
     Route: 048
     Dates: start: 20120626
  3. OMEPRAZOLE [Concomitant]
     Indication: PROPHYLAXIS
     Dosage: UNK
  4. PERINDOPRIL [Concomitant]
  5. FERROUS SULPHATE [Concomitant]
     Indication: IRON LOW
  6. ATORVASTATIN [Concomitant]
     Indication: MYOCARDIAL INFARCTION
  7. BISOPROLOL [Concomitant]
     Indication: MYOCARDIAL INFARCTION
  8. FUROSEMIDE [Concomitant]
     Indication: PULMONARY OEDEMA

REACTIONS (1)
  - Anaemia [Recovered/Resolved]
